FAERS Safety Report 20561798 (Version 1)
Quarter: 2022Q1

REPORT INFORMATION
  Report Type: Spontaneous
  Country: TW (occurrence: TW)
  Receive Date: 20220307
  Receipt Date: 20220307
  Transmission Date: 20220423
  Serious: Yes (Other)
  Sender: FDA-Public Use
  Company Number: TW-BRISTOL-MYERS SQUIBB COMPANY-BMS-2020-079371

PATIENT
  Age: 67 Year
  Sex: Male

DRUGS (1)
  1. NIVOLUMAB [Suspect]
     Active Substance: NIVOLUMAB
     Indication: Hepatocellular carcinoma
     Dosage: 120 MILLIGRAM (2.4 MG/KG: AVERAGE DOSAGE, 2.80 MG/KG)
     Route: 041

REACTIONS (2)
  - Gastrointestinal necrosis [Unknown]
  - Intentional product use issue [Unknown]
